FAERS Safety Report 22610983 (Version 1)
Quarter: 2023Q2

REPORT INFORMATION
  Report Type: Spontaneous
  Country: US (occurrence: US)
  Receive Date: 20230616
  Receipt Date: 20230616
  Transmission Date: 20230721
  Serious: No
  Sender: FDA-Public Use
  Company Number: US-JNJFOC-20230632946

PATIENT
  Age: 19 Year
  Sex: Male
  Weight: 89.438 kg

DRUGS (3)
  1. INVEGA SUSTENNA [Suspect]
     Active Substance: PALIPERIDONE PALMITATE
     Indication: Schizophrenia
     Route: 030
  2. INVEGA SUSTENNA [Suspect]
     Active Substance: PALIPERIDONE PALMITATE
  3. INVEGA SUSTENNA [Suspect]
     Active Substance: PALIPERIDONE PALMITATE

REACTIONS (6)
  - Treatment noncompliance [Unknown]
  - Product dose omission issue [Unknown]
  - Weight decreased [Unknown]
  - Nausea [Unknown]
  - Vomiting [Unknown]
  - Mental disorder [Unknown]

NARRATIVE: CASE EVENT DATE: 20230101
